FAERS Safety Report 11640713 (Version 1)
Quarter: 2015Q4

REPORT INFORMATION
  Report Type: Other
  Country: GB (occurrence: GB)
  Receive Date: 20151019
  Receipt Date: 20151019
  Transmission Date: 20160304
  Serious: Yes (Disabling, Other)
  Sender: FDA-Public Use
  Company Number: GB-MYLANLABS-2015M1034174

PATIENT

DRUGS (1)
  1. SERTRALINE HYDROCHLORIDE. [Suspect]
     Active Substance: SERTRALINE HYDROCHLORIDE
     Indication: OBSESSIVE THOUGHTS
     Dosage: 50 MG, UNK
     Route: 048

REACTIONS (3)
  - Bladder pain [Recovered/Resolved]
  - Micturition urgency [Recovered/Resolved]
  - Pollakiuria [Recovered/Resolved]
